FAERS Safety Report 6208161-9 (Version None)
Quarter: 2009Q2

REPORT INFORMATION
  Report Type: 
  Country: None (occurrence: None)
  Receive Date: 20090529
  Receipt Date: 20090518
  Transmission Date: 20091009
  Serious: Yes (Other)
  Sender: FDA-Public Use
  Company Number: US-ROCHE-630139

PATIENT
  Sex: Female

DRUGS (8)
  1. PEG-INTERFERON A-2A (RO 25-8310) [Suspect]
     Indication: HEPATITIS C
     Route: 065
     Dates: start: 20070101, end: 20070101
  2. PEG-INTERFERON A-2A (RO 25-8310) [Suspect]
     Dosage: FORM: PRE-FILLED SYRINGES, WEEK 8
     Route: 065
     Dates: start: 20090325
  3. RIBAVIRIN [Suspect]
     Indication: HEPATITIS C
     Route: 065
     Dates: start: 20070101, end: 20070101
  4. RIBAVIRIN [Suspect]
     Indication: HEPATITIS C
     Route: 065
     Dates: start: 20090325
  5. LASIX [Concomitant]
     Indication: HYPERTENSION
  6. ANTIHYPERTENSIVE NOS [Concomitant]
     Indication: HYPERTENSION
     Dosage: DRUG: ENFORGE
  7. ZOLOFT [Concomitant]
     Indication: DEPRESSION
  8. LUNESTA [Concomitant]
     Indication: SLEEP DISORDER THERAPY

REACTIONS (4)
  - BACK PAIN [None]
  - DIZZINESS [None]
  - FEMUR FRACTURE [None]
  - GAIT DISTURBANCE [None]
